FAERS Safety Report 6891490-3 (Version None)
Quarter: 2010Q3

REPORT INFORMATION
  Report Type: 
  Country: None (occurrence: None)
  Receive Date: 20100731
  Receipt Date: 20070626
  Transmission Date: 20110219
  Serious: No
  Sender: FDA-Public Use
  Company Number: US-PFIZER INC-2007052729

PATIENT
  Sex: Female
  Weight: 71.67 kg

DRUGS (3)
  1. NORVASC [Suspect]
     Indication: HYPERTENSION
     Route: 048
     Dates: start: 20060101
  2. BENICAR [Concomitant]
  3. TOPROL-XL [Concomitant]

REACTIONS (2)
  - HYPERHIDROSIS [None]
  - SOMNOLENCE [None]
